FAERS Safety Report 6645312-6 (Version None)
Quarter: 2010Q1

REPORT INFORMATION
  Report Type: 
  Country: None (occurrence: None)
  Receive Date: 20100322
  Receipt Date: 20100308
  Transmission Date: 20100710
  Serious: Yes (Death)
  Sender: FDA-Public Use
  Company Number: SG-WATSON-2010-02915

PATIENT
  Age: 4 Year
  Sex: Female

DRUGS (1)
  1. PENICILLIN G POTASSIUM [Suspect]
     Indication: BACTERIAL INFECTION
     Dosage: UNK

REACTIONS (1)
  - TOXIC EPIDERMAL NECROLYSIS [None]
